FAERS Safety Report 8144307-3 (Version None)
Quarter: 2012Q1

REPORT INFORMATION
  Report Type: 
  Country: None (occurrence: None)
  Receive Date: 20120217
  Receipt Date: 20120213
  Transmission Date: 20120608
  Serious: Yes (Death)
  Sender: FDA-Public Use
  Company Number: GB-ROCHE-1023284

PATIENT
  Sex: Male

DRUGS (2)
  1. ENOXAPARIN [Concomitant]
     Dates: start: 20110912
  2. LUCENTIS [Suspect]
     Indication: CHOROIDAL NEOVASCULARISATION
     Route: 050
     Dates: start: 20090210

REACTIONS (1)
  - DEATH [None]
